FAERS Safety Report 4750436-4 (Version None)
Quarter: 2005Q3

REPORT INFORMATION
  Report Type: 
  Country: None (occurrence: None)
  Receive Date: 20050823
  Receipt Date: 20050812
  Transmission Date: 20060218
  Serious: Yes (Hospitalization, Disabling)
  Sender: FDA-Public Use
  Company Number: PHFR2005GB02737

PATIENT
  Age: 42 Year
  Sex: Female
  Weight: 82 kg

DRUGS (3)
  1. ZOMETA [Suspect]
     Indication: MULTIPLE MYELOMA
     Dosage: 4 MG, QMO
     Route: 042
     Dates: start: 20031201, end: 20050601
  2. CITALOPRAM [Concomitant]
  3. ANTIBIOTICS [Concomitant]

REACTIONS (1)
  - ASEPTIC NECROSIS BONE [None]
